FAERS Safety Report 17431063 (Version 1)
Quarter: 2020Q1

REPORT INFORMATION
  Report Type: Spontaneous
  Country: US (occurrence: US)
  Receive Date: 20200217
  Receipt Date: 20200217
  Transmission Date: 20200409
  Serious: Yes (Other)
  Sender: FDA-Public Use
  Company Number: None

PATIENT
  Age: 13 Month
  Sex: Male
  Weight: 12.6 kg

DRUGS (2)
  1. OSTELTAMIVIR [Suspect]
     Active Substance: OSELTAMIVIR
     Indication: INFLUENZA
     Dates: start: 20200127, end: 20200131
  2. ZARBEE MULTIVITAMIN WITH IRON [Concomitant]

REACTIONS (2)
  - Seizure [None]
  - Pyrexia [None]

NARRATIVE: CASE EVENT DATE: 20200128
